FAERS Safety Report 5129481-5 (Version None)
Quarter: 2006Q4

REPORT INFORMATION
  Report Type: 
  Country: None (occurrence: None)
  Receive Date: 20061012
  Receipt Date: 20060929
  Transmission Date: 20070319
  Serious: Yes (Other)
  Sender: FDA-Public Use
  Company Number: 2006110025

PATIENT
  Age: 62 Year
  Sex: Female
  Weight: 68.0396 kg

DRUGS (7)
  1. CHANTIX [Suspect]
     Indication: SMOKING CESSATION THERAPY
     Dates: start: 20060828, end: 20060905
  2. ALBUTEROL [Concomitant]
  3. ADVAIR DISKUS 100/50 [Concomitant]
  4. ASPIRIN [Concomitant]
  5. EFFEXOR [Concomitant]
  6. LIPITOR [Concomitant]
  7. MONTELUKAST (MONTELUKAST) [Concomitant]

REACTIONS (6)
  - CHILLS [None]
  - COUGH [None]
  - DYSPNOEA [None]
  - IMPAIRED WORK ABILITY [None]
  - NAUSEA [None]
  - WHEEZING [None]
